FAERS Safety Report 4771446-7 (Version None)
Quarter: 2005Q3

REPORT INFORMATION
  Report Type: 
  Country: None (occurrence: None)
  Receive Date: 20050915
  Receipt Date: 20050906
  Transmission Date: 20060218
  Serious: Yes (Other)
  Sender: FDA-Public Use
  Company Number: 2005124812

PATIENT
  Age: 39 Year
  Sex: Female
  Weight: 50.8029 kg

DRUGS (6)
  1. NEURONTIN [Suspect]
     Indication: INTERVERTEBRAL DISC PROTRUSION
     Dosage: 2400 MG (600 MG, 4 IN 1 D), ORAL
     Route: 048
     Dates: start: 20010101
  2. NIZATIDINE [Concomitant]
  3. VICODIN [Concomitant]
  4. VITAMINS (VITAMINS) [Concomitant]
  5. TRACE ELEMENTS (MINERALS NOS) [Concomitant]
  6. MORPHINE [Concomitant]

REACTIONS (7)
  - DISTURBANCE IN ATTENTION [None]
  - DRUG WITHDRAWAL SYNDROME [None]
  - DYSKINESIA [None]
  - FORMICATION [None]
  - HYPERHIDROSIS [None]
  - PAIN [None]
  - WEIGHT DECREASED [None]
